FAERS Safety Report 4312329-6 (Version None)
Quarter: 2004Q1

REPORT INFORMATION
  Report Type: 
  Country: None (occurrence: None)
  Receive Date: 20040305
  Receipt Date: 20040302
  Transmission Date: 20041129
  Serious: Yes (Hospitalization)
  Sender: FDA-Public Use
  Company Number: FR-GLAXOSMITHKLINE-B0325340A

PATIENT
  Age: 82 Year
  Sex: Female
  Weight: 63 kg

DRUGS (2)
  1. AUGMENTIN [Suspect]
     Indication: LUNG DISORDER
     Dosage: 3G PER DAY
     Route: 042
     Dates: start: 20031130, end: 20031204
  2. MOPRAL [Suspect]
     Dosage: 20MG PER DAY
     Route: 048
     Dates: start: 20031130, end: 20031204

REACTIONS (3)
  - ANAEMIA [None]
  - DISSEMINATED INTRAVASCULAR COAGULATION [None]
  - THROMBOCYTOPENIA [None]
